FAERS Safety Report 17111884 (Version 1)
Quarter: 2019Q4

REPORT INFORMATION
  Report Type: Spontaneous
  Country: US (occurrence: US)
  Receive Date: 20191111
  Receipt Date: 20191111
  Transmission Date: 20200122
  Serious: Yes (Hospitalization)
  Sender: FDA-Public Use
  Company Number: None

PATIENT
  Age: 52 Year
  Sex: Female
  Weight: 73 kg

DRUGS (4)
  1. CYTOXAN [Suspect]
     Active Substance: CYCLOPHOSPHAMIDE
     Indication: BREAST CANCER
     Dosage: ?          OTHER FREQUENCY:Q 2 WEEKS;?
     Route: 042
     Dates: start: 20191022, end: 20191105
  2. MEDI4736 (DURVALUMAB) [Suspect]
     Active Substance: DURVALUMAB
     Indication: BREAST CANCER
     Dosage: ?          OTHER FREQUENCY:Q 2 WEEKS;?
     Route: 042
     Dates: start: 20190801, end: 20191008
  3. ADRIAMYCIN [Suspect]
     Active Substance: DOXORUBICIN HYDROCHLORIDE
     Indication: BREAST CANCER
     Route: 042
     Dates: start: 20191022, end: 20191105
  4. ABRAXANE [Concomitant]
     Active Substance: PACLITAXEL

REACTIONS (7)
  - Purulent discharge [None]
  - Groin abscess [None]
  - Tenderness [None]
  - Lymphadenopathy [None]
  - Lymph node pain [None]
  - Condition aggravated [None]
  - Pain [None]

NARRATIVE: CASE EVENT DATE: 20191110
